FAERS Safety Report 8349069-2 (Version None)
Quarter: 2012Q2

REPORT INFORMATION
  Report Type: 
  Country: None (occurrence: None)
  Receive Date: 20120510
  Receipt Date: 20120503
  Transmission Date: 20120825
  Serious: Yes (Hospitalization, Other)
  Sender: FDA-Public Use
  Company Number: US-BAYER-201019402NA

PATIENT
  Age: 31 Year
  Sex: Female
  Weight: 86 kg

DRUGS (8)
  1. PENTASA [Concomitant]
     Dosage: 2000 MG/D, UNK
     Route: 048
  2. ELAVIL [Concomitant]
     Dosage: 10 MG/D, UNK
     Route: 048
  3. PROTONIX [Concomitant]
     Dosage: 40 MG, UNK
  4. CARAFATE [Concomitant]
     Dosage: 1 G, QID
     Route: 048
  5. ENTOCORT EC [Concomitant]
     Dosage: 9 MG, UNK
     Route: 048
  6. YAZ [Suspect]
     Indication: POLYCYSTIC OVARIES
     Dosage: UNK UNK, QD
     Route: 048
     Dates: start: 20081001, end: 20090426
  7. YAZ [Suspect]
     Indication: PREMENSTRUAL SYNDROME
  8. PREVACID [Concomitant]
     Route: 048

REACTIONS (4)
  - DYSPNOEA [None]
  - PULMONARY EMBOLISM [None]
  - PLEURITIC PAIN [None]
  - INFECTION [None]
